FAERS Safety Report 9305159 (Version 1)
Quarter: 2013Q2

REPORT INFORMATION
  Report Type: Spontaneous
  Country: US (occurrence: US)
  Receive Date: 20130523
  Receipt Date: 20130523
  Transmission Date: 20140414
  Serious: Yes (Other)
  Sender: FDA-Public Use
  Company Number: PHEH2013US011187

PATIENT
  Sex: 0

DRUGS (3)
  1. RECLAST [Suspect]
     Dosage: UKN
     Route: 042
  2. RECLAST [Suspect]
     Dosage: UKN
     Route: 042
  3. RECLAST [Suspect]
     Dosage: UKN
     Route: 042

REACTIONS (1)
  - Osteomyelitis [Unknown]
